FAERS Safety Report 7756301-2 (Version None)
Quarter: 2011Q3

REPORT INFORMATION
  Report Type: 
  Country: None (occurrence: None)
  Receive Date: 20110916
  Receipt Date: 20110913
  Transmission Date: 20111222
  Serious: Yes (Hospitalization)
  Sender: FDA-Public Use
  Company Number: DE-ROCHE-746193

PATIENT
  Sex: Female
  Weight: 66 kg

DRUGS (5)
  1. EPIRUBICIN [Suspect]
     Indication: BREAST CANCER
     Dosage: DOSE LEVEL: 90 MG/M2. DOSAGE FORM: VIALS. DATE OF LAST DOSE PRIOR TO SAE: 26 NOV 2010.
     Route: 042
     Dates: start: 20101126
  2. TRASTUZUMAB [Suspect]
     Indication: BREAST CANCER
     Route: 065
  3. FLUOROURACIL [Suspect]
     Indication: BREAST CANCER
     Dosage: DOSE LEVEL: 600 MG/M2. DOSAGE FORM: VIALS. DATE OF LAST DOSE PRIOR TO SAE: 26 NOVEMBER 2010.
     Route: 042
     Dates: start: 20101126
  4. BEVACIZUMAB [Suspect]
     Indication: BREAST CANCER
     Route: 065
  5. CYCLOPHOSPHAMIDE [Suspect]
     Indication: BREAST CANCER
     Dosage: DOSE LEVEL: 600 MG/M2. DOSAGE FORM: VIALS. DATE OF LAST DOSE PRIOR TO SAE: 26 NOV 2010.
     Route: 042
     Dates: start: 20101126

REACTIONS (1)
  - SYNCOPE [None]
